FAERS Safety Report 5871516-6 (Version None)
Quarter: 2008Q3

REPORT INFORMATION
  Report Type: 
  Country: None (occurrence: None)
  Receive Date: 20080905
  Receipt Date: 20080312
  Transmission Date: 20090109
  Serious: No
  Sender: FDA-Public Use
  Company Number: A0714998A

PATIENT
  Age: 61 Year
  Sex: Male

DRUGS (2)
  1. REQUIP [Suspect]
     Indication: RESTLESS LEGS SYNDROME
     Dosage: 5MG AT NIGHT
     Route: 048
     Dates: start: 20060226
  2. NO CONCURRENT MEDICATION [Concomitant]

REACTIONS (2)
  - DRUG SCREEN FALSE POSITIVE [None]
  - DRUG SCREEN POSITIVE [None]
